FAERS Safety Report 6831065-5 (Version None)
Quarter: 2010Q3

REPORT INFORMATION
  Report Type: 
  Country: None (occurrence: None)
  Receive Date: 20100712
  Receipt Date: 20100611
  Transmission Date: 20110219
  Serious: No
  Sender: FDA-Public Use
  Company Number: US-BAYER-201016899BCC

PATIENT
  Age: 82 Year
  Sex: Male
  Weight: 73 kg

DRUGS (2)
  1. ALEVE (CAPLET) [Suspect]
     Indication: BACK PAIN
     Dosage: TOOK 1 TO 2 CAPLETS
     Route: 048
     Dates: start: 20100501
  2. SINEMET [Concomitant]

REACTIONS (1)
  - FOREIGN BODY [None]
